FAERS Safety Report 11821486 (Version 1)
Quarter: 2015Q4

REPORT INFORMATION
  Report Type: Spontaneous
  Country: US (occurrence: US)
  Receive Date: 20151210
  Receipt Date: 20151210
  Transmission Date: 20160305
  Serious: Yes (Other)
  Sender: FDA-Public Use
  Company Number: US-BAYER-2015-482836

PATIENT
  Age: 85 Year
  Sex: Female
  Weight: 57.14 kg

DRUGS (1)
  1. ALEVE [Suspect]
     Active Substance: NAPROXEN SODIUM
     Indication: ANALGESIC THERAPY
     Dosage: 1 DF, BID
     Route: 048
     Dates: start: 2012

REACTIONS (3)
  - Product use issue [None]
  - Product size issue [None]
  - Choking [None]

NARRATIVE: CASE EVENT DATE: 2012
